FAERS Safety Report 17484334 (Version 2)
Quarter: 2020Q1

REPORT INFORMATION
  Report Type: Spontaneous
  Country: DE (occurrence: DE)
  Receive Date: 20200302
  Receipt Date: 20200331
  Transmission Date: 20200409
  Serious: Yes (Hospitalization, Other)
  Sender: FDA-Public Use
  Company Number: DE-PFIZER INC-2020086409

PATIENT
  Age: 68 Year
  Sex: Female
  Weight: 58 kg

DRUGS (10)
  1. MAGNESIUM [Concomitant]
     Active Substance: MAGNESIUM
     Dosage: 375 ML, 1X/DAY
  2. TRAMADOL LIBRAPHARM [Concomitant]
     Dosage: 200 MG, 2X/DAY
  3. XIPAMID 1A PHARMA [Concomitant]
     Dosage: 40 MG, 1X/DAY
  4. SILICA [Concomitant]
     Active Substance: SILICON DIOXIDE
     Dosage: UNK UNK, 2X/DAY
  5. CELEBREX [Suspect]
     Active Substance: CELECOXIB
     Indication: MUSCULOSKELETAL STIFFNESS
     Dosage: 200 MG, 1X/DAY
     Dates: start: 2005
  6. NOVOTHYRAL [Concomitant]
     Active Substance: LEVOTHYROXINE SODIUM\LIOTHYRONINE SODIUM
     Dosage: 74 MG, 1X/DAY
  7. VITAMIN C + ZINK [Concomitant]
     Dosage: UNK UNK, 1X/DAY
  8. BISOPROLOL RATIOPHARM [Concomitant]
     Active Substance: BISOPROLOL
     Dosage: 2.5 MG, 1X/DAY
  9. CALCIUM PLUS VITAMIN D3 [Concomitant]
     Dosage: 400 ML 1X/DAY
  10. TOLPERISON HCL STADA [Concomitant]
     Dosage: 50 MG, 2X/DAY

REACTIONS (2)
  - Interstitial lung disease [Not Recovered/Not Resolved]
  - Toxicity to various agents [Not Recovered/Not Resolved]

NARRATIVE: CASE EVENT DATE: 201905
